FAERS Safety Report 5358891-6 (Version None)
Quarter: 2007Q2

REPORT INFORMATION
  Report Type: 
  Country: None (occurrence: None)
  Receive Date: 20070615
  Receipt Date: 20070608
  Transmission Date: 20071010
  Serious: Yes (Life-Threatening, Disabling, Other)
  Sender: FDA-Public Use
  Company Number: A0653210A

PATIENT
  Age: 55 Year
  Sex: Male
  Weight: 100 kg

DRUGS (8)
  1. AVANDAMET [Suspect]
     Indication: DRUG DISPENSING ERROR
     Dosage: 1TAB PER DAY
     Route: 048
     Dates: start: 20070401, end: 20070525
  2. AVODART [Suspect]
     Indication: BENIGN PROSTATIC HYPERPLASIA
     Dosage: 1CAP PER DAY
     Route: 048
     Dates: start: 20050101
  3. PYRIDIUM PLUS [Concomitant]
  4. FLOMAX [Concomitant]
  5. TESTOSTERONE [Concomitant]
  6. KLONOPIN [Concomitant]
  7. AMBIEN [Concomitant]
  8. TOPAMAX [Concomitant]

REACTIONS (17)
  - COMA [None]
  - DIABETIC COMPLICATION [None]
  - DIZZINESS [None]
  - DRUG DISPENSING ERROR [None]
  - DYSURIA [None]
  - FATIGUE [None]
  - FOOD CRAVING [None]
  - HYPOGLYCAEMIA [None]
  - INCREASED APPETITE [None]
  - INJURY [None]
  - INSOMNIA [None]
  - LETHARGY [None]
  - LOCALISED INFECTION [None]
  - POLLAKIURIA [None]
  - THIRST [None]
  - TINEA PEDIS [None]
  - WEIGHT INCREASED [None]
